FAERS Safety Report 9800279 (Version 2)
Quarter: 2014Q1

REPORT INFORMATION
  Report Type: Report from Study
  Country: US (occurrence: US)
  Receive Date: 20140106
  Receipt Date: 20140106
  Transmission Date: 20141002
  Serious: Yes (Hospitalization)
  Sender: FDA-Public Use
  Company Number: US-ABBVIE-13P-163-1173651-00

PATIENT
  Age: 58 Year
  Sex: Female
  Weight: 67.19 kg

DRUGS (8)
  1. HUMIRA [Suspect]
     Indication: COLITIS ULCERATIVE
     Dates: start: 20131028
  2. HUMIRA [Suspect]
     Dates: start: 20131111
  3. HUMIRA [Suspect]
  4. AZATHIOPRINE [Suspect]
     Dates: start: 20130516
  5. IRON [Concomitant]
     Indication: PRODUCT USED FOR UNKNOWN INDICATION
  6. MULTI VITAMIN [Concomitant]
     Indication: PRODUCT USED FOR UNKNOWN INDICATION
  7. CALCIUM [Concomitant]
     Indication: PRODUCT USED FOR UNKNOWN INDICATION
  8. ASACOL [Concomitant]
     Indication: COLITIS ULCERATIVE
     Dosage: TWO TABLETS THREE TIMES PER DAY

REACTIONS (4)
  - Blood pressure decreased [Recovered/Resolved]
  - Pancreatitis acute [Recovering/Resolving]
  - Dehydration [Recovered/Resolved]
  - Colitis [Recovered/Resolved]
